FAERS Safety Report 6291845-4 (Version None)
Quarter: 2009Q3

REPORT INFORMATION
  Report Type: 
  Country: None (occurrence: None)
  Receive Date: 20090730
  Receipt Date: 20090724
  Transmission Date: 20100115
  Serious: Yes (Hospitalization)
  Sender: FDA-Public Use
  Company Number: DE-MERCK-0907DEU00022

PATIENT
  Age: 64 Year
  Sex: Female
  Weight: 100 kg

DRUGS (1)
  1. ZETIA [Suspect]
     Indication: HYPERCHOLESTEROLAEMIA
     Route: 048
     Dates: start: 20081001, end: 20090101

REACTIONS (2)
  - CHRONIC HEPATITIS [None]
  - HEPATIC FIBROSIS [None]
